FAERS Safety Report 9035571 (Version 1)
Quarter: 2013Q1

REPORT INFORMATION
  Report Type: Report from Study
  Country: US (occurrence: US)
  Receive Date: 20130129
  Receipt Date: 20130129
  Transmission Date: 20140127
  Serious: No
  Sender: FDA-Public Use
  Company Number: US-ABBOTT-12P-163-0912289-00

PATIENT
  Age: 61 Year
  Sex: Female

DRUGS (11)
  1. HUMIRA 40 MG/ 0.8 ML PRE-FILLED SYRINGE [Suspect]
     Indication: COLITIS ULCERATIVE
     Dosage: LOADING DOSE
     Dates: start: 20120227
  2. ATENOLOL [Concomitant]
     Indication: BLOOD PRESSURE
     Dosage: DAILY
  3. PLAVIX [Concomitant]
     Indication: POSTOPERATIVE THROMBOSIS
  4. TYLENOL OTC [Concomitant]
     Indication: PROCEDURAL PAIN
  5. DILAUDID (GENERIC) [Concomitant]
     Indication: POSTOPERATIVE ANALGESIA
  6. IMODIUM AD [Concomitant]
     Indication: COLITIS
     Dosage: AS NEEDED, UP TO 4 DOSES DAILY
  7. ADVAIR [Concomitant]
     Indication: CHRONIC OBSTRUCTIVE PULMONARY DISEASE
     Dosage: 2.5 ONE PUFF A.M AND P.M.
  8. COMBIVENT [Concomitant]
     Indication: ASTHMA
     Dosage: 2 PUFFS A.M. AND P.M.
  9. COMBIVENT [Concomitant]
     Indication: CHRONIC OBSTRUCTIVE PULMONARY DISEASE
  10. RESCUE INHALER [Concomitant]
     Indication: ASTHMA
  11. RESCUE INHALER [Concomitant]
     Indication: CHRONIC OBSTRUCTIVE PULMONARY DISEASE

REACTIONS (1)
  - Diarrhoea [Not Recovered/Not Resolved]
